FAERS Safety Report 22094338 (Version 2)
Quarter: 2023Q2

REPORT INFORMATION
  Report Type: Report from Study
  Country: US (occurrence: US)
  Receive Date: 20230314
  Receipt Date: 20230518
  Transmission Date: 20230721
  Serious: Yes (Other)
  Sender: FDA-Public Use
  Company Number: US-JAZZ-2023-US-000881

PATIENT
  Sex: Female

DRUGS (2)
  1. XYREM [Suspect]
     Active Substance: SODIUM OXYBATE
     Indication: Hypersomnia
  2. SYNTHROID [Concomitant]
     Active Substance: LEVOTHYROXINE SODIUM
     Indication: Product used for unknown indication
     Dosage: 0000
     Dates: start: 20130308

REACTIONS (7)
  - Suicidal ideation [Unknown]
  - Chronic inflammatory response syndrome [Unknown]
  - Disability [Unknown]
  - Essential tremor [Unknown]
  - Restless legs syndrome [Unknown]
  - Hypertension [Unknown]
  - Off label use [Unknown]
